FAERS Safety Report 6240740-5 (Version None)
Quarter: 2009Q2

REPORT INFORMATION
  Report Type: 
  Country: None (occurrence: None)
  Receive Date: 20090623
  Receipt Date: 20090612
  Transmission Date: 20091009
  Serious: Yes (Hospitalization)
  Sender: FDA-Public Use
  Company Number: ES-JNJFOC-20090606665

PATIENT
  Sex: Female

DRUGS (3)
  1. REOPRO [Suspect]
     Indication: CORONARY ANGIOPLASTY
     Route: 040
  2. HEPARIN [Concomitant]
  3. IODINE PRODUCTS [Concomitant]

REACTIONS (2)
  - CONVULSION [None]
  - TREMOR [None]
